FAERS Safety Report 16059864 (Version 1)
Quarter: 2019Q2

REPORT INFORMATION
  Report Type: Spontaneous
  Country: US (occurrence: US)
  Receive Date: 20190311
  Receipt Date: 20190311
  Transmission Date: 20190711
  Serious: Yes (Hospitalization)
  Sender: FDA-Public Use
  Company Number: None

PATIENT
  Age: 64 Year
  Sex: Female
  Weight: 99.9 kg

DRUGS (3)
  1. VITAMIN D2 [Concomitant]
     Active Substance: ERGOCALCIFEROL
  2. EXCEDRIN MIGRAINE [Concomitant]
     Active Substance: ACETAMINOPHEN\ASPIRIN\CAFFEINE
  3. AJOVY [Suspect]
     Active Substance: FREMANEZUMAB-VFRM
     Indication: MIGRAINE
     Dosage: ?          QUANTITY:1 INJECTION(S);OTHER FREQUENCY:1X MONTHLY SAMEDAY;OTHER ROUTE:INJECTION?
     Dates: start: 20181218, end: 20190218

REACTIONS (8)
  - Lip blister [None]
  - Oropharyngeal pain [None]
  - Cough [None]
  - Pyrexia [None]
  - Influenza like illness [None]
  - Gingival blister [None]
  - Stomatitis [None]
  - Dyspnoea [None]

NARRATIVE: CASE EVENT DATE: 20190118
